FAERS Safety Report 5324507-8 (Version None)
Quarter: 2007Q2

REPORT INFORMATION
  Report Type: 
  Country: None (occurrence: None)
  Receive Date: 20070508
  Receipt Date: 20070424
  Transmission Date: 20071010
  Serious: Yes (Life-Threatening)
  Sender: FDA-Public Use
  Company Number: 2007JP001777

PATIENT
  Age: 81 Year
  Sex: Female
  Weight: 48 kg

DRUGS (9)
  1. VESICARE [Suspect]
     Dosage: 5 MG, UID/QD, ORAL
     Route: 048
     Dates: start: 20070228, end: 20070328
  2. SPIROPENT (CLENBUTEROL HYDROCHLORIDE) TABLET [Concomitant]
  3. AMLODIN (AMLODIPOINE BESILATE) TABLET [Concomitant]
  4. ALFAROL (ALFACALCIDOL) TABLET [Concomitant]
  5. GASPORT TABLET [Concomitant]
  6. STROCAIN (OXETACAINE) TABLET [Concomitant]
  7. SELBEX (TEPRENONE) TABLET [Concomitant]
  8. MARZULENE S (LEVOGLUTAMIDE, SODIUM GUALENATE) POWDER [Concomitant]
  9. MEILAX (ETHYL LOFLOZEPATE) TABLET [Concomitant]

REACTIONS (3)
  - SYNCOPE [None]
  - TORSADE DE POINTES [None]
  - VENTRICULAR TACHYCARDIA [None]
